FAERS Safety Report 15530657 (Version 1)
Quarter: 2018Q4

REPORT INFORMATION
  Report Type: Spontaneous
  Country: TH (occurrence: TH)
  Receive Date: 20181018
  Receipt Date: 20181018
  Transmission Date: 20190205
  Serious: Yes (Hospitalization, Other)
  Sender: FDA-Public Use
  Company Number: TH-BAUSCH-BL-2018-027995

PATIENT
  Age: 38 Year
  Sex: Female

DRUGS (6)
  1. AZATHIOPRINE. [Suspect]
     Active Substance: AZATHIOPRINE
     Indication: SYSTEMIC LUPUS ERYTHEMATOSUS
     Route: 065
     Dates: start: 2002
  2. PREDNISOLONE. [Suspect]
     Active Substance: PREDNISOLONE
     Indication: SYSTEMIC LUPUS ERYTHEMATOSUS
     Route: 065
     Dates: start: 2002, end: 2015
  3. PREDNISOLONE. [Suspect]
     Active Substance: PREDNISOLONE
     Route: 065
     Dates: start: 2015
  4. CEFTRIAXONE. [Concomitant]
     Active Substance: CEFTRIAXONE
     Indication: ENTERITIS
     Dates: start: 201808
  5. HYDROXYCHLOROQUINE [Suspect]
     Active Substance: HYDROXYCHLOROQUINE
     Indication: IMMUNOSUPPRESSION
     Route: 065
     Dates: start: 2015
  6. MESTINO [Concomitant]
     Indication: MYASTHENIA GRAVIS
     Dates: start: 201509, end: 201510

REACTIONS (13)
  - Myositis [Recovered/Resolved]
  - Varicella zoster virus infection [Recovered/Resolved]
  - Skin infection [Recovered/Resolved]
  - Lymphopenia [Recovered/Resolved]
  - Leukopenia [Recovered/Resolved]
  - Lupus myocarditis [Recovered/Resolved]
  - Legionella infection [Recovered/Resolved]
  - Immunodeficiency [Recovered/Resolved]
  - Neutrophilic panniculitis [Recovered/Resolved]
  - Soft tissue infection [Recovered/Resolved]
  - Enteritis [Recovered/Resolved]
  - Eyelid ptosis [Recovered/Resolved]
  - Cytomegalovirus infection [Recovered/Resolved]

NARRATIVE: CASE EVENT DATE: 201511
